FAERS Safety Report 21645509 (Version 1)
Quarter: 2022Q4

REPORT INFORMATION
  Report Type: Report from Study
  Country: US (occurrence: US)
  Receive Date: 20221126
  Receipt Date: 20221126
  Transmission Date: 20230112
  Serious: No
  Sender: FDA-Public Use
  Company Number: US-ABBVIE-4168036

PATIENT
  Sex: Male

DRUGS (1)
  1. HUMIRA [Suspect]
     Active Substance: ADALIMUMAB
     Indication: Crohn^s disease
     Dosage: CITRATE FREE (STRENGTH - 40MG)
     Route: 058

REACTIONS (3)
  - Weight decreased [Unknown]
  - Fatigue [Unknown]
  - Gastrointestinal wall thickening [Unknown]
